FAERS Safety Report 8497906 (Version 3)
Quarter: 2013Q1

REPORT INFORMATION
  Report Type: Spontaneous
  Country: US (occurrence: US)
  Receive Date: 20120406
  Receipt Date: 20130110
  Transmission Date: 20140127
  Serious: Yes (Hospitalization, Other)
  Sender: FDA-Public Use
  Company Number: US-BRISTOL-MYERS SQUIBB COMPANY-16389868

PATIENT
  Age: 63 Year
  Sex: Male

DRUGS (15)
  1. BELATACEPT [Suspect]
     Indication: RENAL TRANSPLANT
     Dosage: 8DEC11-10MG/KG
     Route: 042
     Dates: start: 20111208, end: 20120103
  2. PREDNISOLONE [Concomitant]
     Route: 048
     Dates: start: 20111208, end: 20120117
  3. MYCOPHENOLATE MOFETIL [Concomitant]
     Dates: start: 20111208, end: 20120112
  4. ALLOPURINOL [Concomitant]
  5. K-PHOS NEUTRAL [Concomitant]
  6. BACTRIM [Concomitant]
     Dosage: BACTRIM SS 1 TAB
  7. VALCYTE [Concomitant]
  8. NIACIN [Concomitant]
  9. COREG [Concomitant]
  10. PEPCID [Concomitant]
  11. FISH OIL [Concomitant]
  12. MULTIVITAMIN [Concomitant]
  13. VITAMIN D [Concomitant]
     Dosage: 800 UNITS
  14. SIMULECT [Concomitant]
     Route: 042
     Dates: start: 20111208, end: 20111211
  15. METHYLPREDNISOLONE [Concomitant]
     Dosage: 500MG-8DEC11?250MG POD1?125MG POD2?PULSE 800MG IV Q DAYX3 2JAN-4JAN12
     Route: 042

REACTIONS (4)
  - Graft loss [Unknown]
  - Transplant rejection [Unknown]
  - Renal tubular necrosis [Unknown]
  - Pyrexia [Unknown]
